FAERS Safety Report 17147968 (Version 1)
Quarter: 2019Q4

REPORT INFORMATION
  Report Type: Spontaneous
  Country: US (occurrence: US)
  Receive Date: 20191212
  Receipt Date: 20191212
  Transmission Date: 20200122
  Serious: No
  Sender: FDA-Public Use
  Company Number: US-TEIKOKU PHARMA USA-TPU2019-00835

PATIENT
  Sex: Male
  Weight: 79.45 kg

DRUGS (4)
  1. LIDODERM [Suspect]
     Active Substance: LIDOCAINE
     Indication: PROCEDURAL PAIN
  2. PERCOCET [Concomitant]
     Active Substance: ACETAMINOPHEN\OXYCODONE HYDROCHLORIDE
     Indication: PROCEDURAL PAIN
  3. PERCOCET [Concomitant]
     Active Substance: ACETAMINOPHEN\OXYCODONE HYDROCHLORIDE
     Indication: NEURALGIA
     Dosage: 10-325 MG
  4. LIDODERM [Suspect]
     Active Substance: LIDOCAINE
     Indication: NEURALGIA
     Dosage: APPLY TO LOWER BACK AS NEEDED
     Dates: start: 2010

REACTIONS (2)
  - Drug ineffective for unapproved indication [Unknown]
  - Expired product administered [Unknown]

NARRATIVE: CASE EVENT DATE: 2019
